FAERS Safety Report 12191362 (Version 1)
Quarter: 2016Q1

REPORT INFORMATION
  Report Type: Report from Study
  Country: US (occurrence: US)
  Receive Date: 20160318
  Receipt Date: 20160318
  Transmission Date: 20160526
  Serious: Yes (Other)
  Sender: FDA-Public Use
  Company Number: US-AMGEN-USASL2016032515

PATIENT

DRUGS (1)
  1. SENSIPAR [Suspect]
     Active Substance: CINACALCET HYDROCHLORIDE
     Indication: PRODUCT USED FOR UNKNOWN INDICATION
     Dosage: 30 MG, QD
     Route: 048

REACTIONS (6)
  - Deafness unilateral [Unknown]
  - Muscle spasms [Unknown]
  - Hypoaesthesia [Unknown]
  - Libido decreased [Unknown]
  - Fatigue [Unknown]
  - Dizziness [Unknown]
